FAERS Safety Report 20729719 (Version 2)
Quarter: 2022Q2

REPORT INFORMATION
  Report Type: Spontaneous
  Country: JP (occurrence: JP)
  Receive Date: 20220420
  Receipt Date: 20220608
  Transmission Date: 20220721
  Serious: Yes (Other)
  Sender: FDA-Public Use
  Company Number: JP-ASTELLAS-2022JP005679

PATIENT
  Age: 51 Year
  Sex: Female

DRUGS (4)
  1. PADCEV [Suspect]
     Active Substance: ENFORTUMAB VEDOTIN-EJFV
     Indication: Transitional cell carcinoma
     Dosage: 1.25 MG/KG, ONCE WEEKLY, ADMINISTERED FOR 3 WEEKS AND INTERRUPTED ON THE 4TH WEEK
     Route: 041
     Dates: start: 20220406, end: 202204
  2. PADCEV [Suspect]
     Active Substance: ENFORTUMAB VEDOTIN-EJFV
     Dosage: UNKNOWN, ONCE WEEKLY, ADMINISTERED FOR 3 WEEKS AND INTERRUPTED ON THE 4TH WEEK
     Route: 041
     Dates: start: 202204, end: 20220420
  3. Novamin [Concomitant]
     Indication: Decreased appetite
     Dosage: UNK UNK, UNKNOWN FREQ.
     Route: 065
     Dates: start: 20220413
  4. Novamin [Concomitant]
     Indication: Nausea

REACTIONS (5)
  - Cachexia [Unknown]
  - Decreased appetite [Not Recovered/Not Resolved]
  - Nausea [Not Recovered/Not Resolved]
  - Vomiting [Not Recovered/Not Resolved]
  - Malaise [Not Recovered/Not Resolved]

NARRATIVE: CASE EVENT DATE: 20220413
